FAERS Safety Report 10210021 (Version 2)
Quarter: 2014Q2

REPORT INFORMATION
  Report Type: Spontaneous
  Country: BR (occurrence: BR)
  Receive Date: 20140602
  Receipt Date: 20140602
  Transmission Date: 20141212
  Serious: Yes (Other)
  Sender: FDA-Public Use
  Company Number: BR-JNJFOC-20140412774

PATIENT
  Age: 58 Year
  Sex: Female
  Weight: 67 kg

DRUGS (6)
  1. SIMPONI [Suspect]
     Indication: RHEUMATOID ARTHRITIS
     Route: 058
     Dates: start: 20140403
  2. PARACETAMOL [Concomitant]
     Route: 065
  3. METHOTREXATE [Concomitant]
     Route: 065
  4. DOLAMINE [Concomitant]
     Indication: PAIN
     Route: 065
  5. TANDRILAX [Concomitant]
     Route: 065
  6. ALGINAC [Concomitant]
     Route: 065

REACTIONS (2)
  - Localised infection [Not Recovered/Not Resolved]
  - Cellulitis [Unknown]
